FAERS Safety Report 6930093-9 (Version None)
Quarter: 2010Q3

REPORT INFORMATION
  Report Type: 
  Country: None (occurrence: None)
  Receive Date: 20100817
  Receipt Date: 20100817
  Transmission Date: 20110219
  Serious: No
  Sender: FDA-Public Use
  Company Number: None

PATIENT
  Age: 65 Year
  Sex: Female
  Weight: 77.1115 kg

DRUGS (1)
  1. REMICADE [Suspect]
     Indication: RHEUMATOID ARTHRITIS
     Dosage: 4 VIALS EVERY 6 WKS
     Dates: start: 20100201

REACTIONS (5)
  - ERYTHEMA [None]
  - LETHARGY [None]
  - NAUSEA [None]
  - POST PROCEDURAL INFECTION [None]
  - STAPHYLOCOCCAL INFECTION [None]
